FAERS Safety Report 24460800 (Version 2)
Quarter: 2025Q1

REPORT INFORMATION
  Report Type: Spontaneous
  Country: JP (occurrence: JP)
  Receive Date: 20241018
  Receipt Date: 20250113
  Transmission Date: 20250409
  Serious: Yes (Death)
  Sender: AMGEN
  Company Number: JP-KISSEI-TV20240844_P_1

PATIENT
  Age: 75 Year
  Sex: Male

DRUGS (3)
  1. TAVNEOS [Suspect]
     Active Substance: AVACOPAN
     Indication: Microscopic polyangiitis
     Dosage: 60 MG/DAY
     Route: 048
     Dates: start: 202407, end: 202409
  2. PREDONINE [Concomitant]
     Active Substance: PREDNISOLONE
     Indication: Microscopic polyangiitis
     Dosage: 8 MG, QD
     Route: 065
  3. IMURAN [Concomitant]
     Active Substance: AZATHIOPRINE
     Indication: Microscopic polyangiitis
     Dosage: 75 MG
     Route: 048

REACTIONS (3)
  - Fall [Fatal]
  - Fracture [Fatal]
  - Herpes zoster [Unknown]

NARRATIVE: CASE EVENT DATE: 20240901
